FAERS Safety Report 6468607-8 (Version None)
Quarter: 2009Q4

REPORT INFORMATION
  Report Type: 
  Country: None (occurrence: None)
  Receive Date: 20091202
  Receipt Date: 20091202
  Transmission Date: 20100525
  Serious: No
  Sender: FDA-Public Use
  Company Number: None

PATIENT
  Sex: Female
  Weight: 71.6683 kg

DRUGS (2)
  1. TACROLIMUS [Suspect]
     Indication: RENAL TRANSPLANT
     Dosage: PROGRAF 1MG 3MG TID PO
     Route: 048
     Dates: start: 20060808
  2. CELLCEPT [Concomitant]

REACTIONS (1)
  - PRODUCT SUBSTITUTION ISSUE [None]
